FAERS Safety Report 6454219-9 (Version None)
Quarter: 2009Q4

REPORT INFORMATION
  Report Type: 
  Country: None (occurrence: None)
  Receive Date: 20091124
  Receipt Date: 20091116
  Transmission Date: 20100525
  Serious: Yes (Death, Other)
  Sender: FDA-Public Use
  Company Number: US-JNJCH-2009030186

PATIENT
  Age: 55 Year
  Sex: Male

DRUGS (4)
  1. MINOXIDIL 2% [Suspect]
     Indication: ANDROGENETIC ALOPECIA
     Dosage: TEXT:UNSPECIFIED
     Route: 061
  2. MINOXIDIL 5% [Suspect]
     Indication: ANDROGENETIC ALOPECIA
     Dosage: TEXT:UNSPECIFIED
     Route: 061
  3. MINOXIDIL [Suspect]
     Indication: ANDROGENETIC ALOPECIA
     Dosage: TEXT:3% UNSPECIFIED
     Route: 061
  4. PROGESTERONE [Suspect]
     Indication: DRUG USE FOR UNKNOWN INDICATION
     Dosage: TEXT:1/2% UNSPECIFIED
     Route: 065

REACTIONS (2)
  - ARTERIOSCLEROSIS [None]
  - HYPERTENSION [None]
